FAERS Safety Report 14145595 (Version 1)
Quarter: 2017Q4

REPORT INFORMATION
  Report Type: Spontaneous
  Country: US (occurrence: US)
  Receive Date: 20171030
  Receipt Date: 20171030
  Transmission Date: 20180321
  Serious: Yes (Other)
  Sender: FDA-Public Use
  Company Number: None

PATIENT
  Age: 74 Year
  Sex: Male
  Weight: 73.5 kg

DRUGS (7)
  1. VERAPAMIL [Concomitant]
     Active Substance: VERAPAMIL HYDROCHLORIDE
  2. FENTANYL. [Concomitant]
     Active Substance: FENTANYL
  3. HEPARIN [Concomitant]
     Active Substance: HEPARIN SODIUM
  4. BRILINTA [Concomitant]
     Active Substance: TICAGRELOR
  5. VERSED [Concomitant]
     Active Substance: MIDAZOLAM HYDROCHLORIDE
  6. INTEGRILIN [Concomitant]
     Active Substance: EPTIFIBATIDE
  7. ISOVUE 370 [Suspect]
     Active Substance: IOPAMIDOL
     Indication: CATHETERISATION CARDIAC
     Dosage: ?          OTHER FREQUENCY:ONE TIME;?
     Route: 040

REACTIONS (4)
  - Bradycardia [None]
  - Procedural complication [None]
  - Urticaria [None]
  - Hypotension [None]
